FAERS Safety Report 7780658-X (Version None)
Quarter: 2011Q3

REPORT INFORMATION
  Report Type: 
  Country: None (occurrence: None)
  Receive Date: 20110927
  Receipt Date: 20110307
  Transmission Date: 20111222
  Serious: No
  Sender: FDA-Public Use
  Company Number: US-BRISTOL-MYERS SQUIBB COMPANY-15563059

PATIENT
  Age: 77 Year
  Sex: Female

DRUGS (2)
  1. HYDROCHLOROTHIAZIDE [Suspect]
     Dosage: 1 TAB
     Route: 048
  2. AVAPRO [Suspect]
     Route: 048

REACTIONS (1)
  - ADVERSE EVENT [None]
